FAERS Safety Report 5324230-X (Version None)
Quarter: 2007Q2

REPORT INFORMATION
  Report Type: 
  Country: None (occurrence: None)
  Receive Date: 20070514
  Receipt Date: 20070504
  Transmission Date: 20071010
  Serious: Yes (Life-Threatening)
  Sender: FDA-Public Use
  Company Number: AU-BRISTOL-MYERS SQUIBB COMPANY-13778121

PATIENT
  Age: 69 Year
  Sex: Male

DRUGS (4)
  1. METFORMIN HCL [Suspect]
     Route: 048
     Dates: end: 20060723
  2. RAMIPRIL [Suspect]
     Route: 048
     Dates: end: 20060723
  3. METOPROLOL TARTRATE [Concomitant]
  4. AMLODIPINE [Concomitant]
     Route: 048

REACTIONS (2)
  - LACTIC ACIDOSIS [None]
  - RENAL FAILURE ACUTE [None]
